FAERS Safety Report 14493971 (Version 1)
Quarter: 2018Q1

REPORT INFORMATION
  Report Type: Report from Study
  Country: HK (occurrence: HK)
  Receive Date: 20180206
  Receipt Date: 20180206
  Transmission Date: 20180509
  Serious: Yes (Other)
  Sender: FDA-Public Use
  Company Number: HK-BAYER-2018-022286

PATIENT
  Age: 46 Year
  Sex: Male

DRUGS (17)
  1. TRIMETHOPRIM. [Suspect]
     Active Substance: TRIMETHOPRIM
  2. PARACETAMOL [Suspect]
     Active Substance: ACETAMINOPHEN
  3. IBUPROFEN. [Suspect]
     Active Substance: IBUPROFEN
  4. NEFOPAM [Suspect]
     Active Substance: NEFOPAM
  5. METOCLOPRAMIDE. [Suspect]
     Active Substance: METOCLOPRAMIDE
  6. CHLORZOXAZONE. [Suspect]
     Active Substance: CHLORZOXAZONE
  7. PHENYLBUTAZONE [Suspect]
     Active Substance: PHENYLBUTAZONE
  8. DIOXOPROMETHAZINE [Suspect]
     Active Substance: DIOXOPROMETHAZINE
  9. INDOMETHACIN. [Suspect]
     Active Substance: INDOMETHACIN
  10. PIROXICAM. [Suspect]
     Active Substance: PIROXICAM
  11. CIMETIDINE [Suspect]
     Active Substance: CIMETIDINE
  12. THEOPHYLLINE [Suspect]
     Active Substance: THEOPHYLLINE ANHYDROUS
  13. CHLORPHENIRAMINE MALEATE. [Suspect]
     Active Substance: CHLORPHENIRAMINE MALEATE
  14. PREDNISONE ACETATE [Suspect]
     Active Substance: PREDNISONE ACETATE
  15. DICLOFENAC [Suspect]
     Active Substance: DICLOFENAC
  16. HYDROCHLOROTHIAZIDE. [Suspect]
     Active Substance: HYDROCHLOROTHIAZIDE
  17. JIA RONG ZHUANG GU TONG BI JIAO NANG (UNDECLARED INGREDIENT) [Suspect]
     Active Substance: NAPROXEN SODIUM

REACTIONS (3)
  - Secondary adrenocortical insufficiency [None]
  - Peptic ulcer [None]
  - Renal impairment [None]
